FAERS Safety Report 18117831 (Version 1)
Quarter: 2020Q3

REPORT INFORMATION
  Report Type: Spontaneous
  Country: US (occurrence: US)
  Receive Date: 20200806
  Receipt Date: 20200806
  Transmission Date: 20201103
  Serious: No
  Sender: FDA-Public Use
  Company Number: US-ELI_LILLY_AND_COMPANY-US202008001747

PATIENT
  Sex: Male

DRUGS (2)
  1. TADALAFIL 5MG [Suspect]
     Active Substance: TADALAFIL
     Indication: ERECTILE DYSFUNCTION
  2. TADALAFIL 5MG [Suspect]
     Active Substance: TADALAFIL
     Indication: BENIGN PROSTATIC HYPERPLASIA
     Dosage: 5 MG, UNKNOWN
     Route: 065
     Dates: start: 2019

REACTIONS (1)
  - Urine flow decreased [Unknown]
